FAERS Safety Report 7819905-4 (Version None)
Quarter: 2011Q4

REPORT INFORMATION
  Report Type: 
  Country: None (occurrence: None)
  Receive Date: 20111018
  Receipt Date: 20101109
  Transmission Date: 20120403
  Serious: No
  Sender: FDA-Public Use
  Company Number: US-ASTRAZENECA-2010SE45503

PATIENT
  Age: 64 Year
  Sex: Male
  Weight: 99.8 kg

DRUGS (3)
  1. SYMBICORT [Suspect]
     Indication: DYSPNOEA
     Dosage: 160/4.5 UG ONE PUFF TWO TIMES A DAY
     Route: 055
     Dates: start: 20090101
  2. AMLODIPINE [Concomitant]
  3. TRIAM HCT [Concomitant]

REACTIONS (2)
  - SNORING [None]
  - THROAT IRRITATION [None]
